FAERS Safety Report 9637413 (Version 1)
Quarter: 2013Q4

REPORT INFORMATION
  Report Type: Report from Study
  Country: ES (occurrence: ES)
  Receive Date: 20131022
  Receipt Date: 20131022
  Transmission Date: 20140711
  Serious: Yes (Hospitalization)
  Sender: FDA-Public Use
  Company Number: ES-SA-2013SA104554

PATIENT
  Age: 77 Year
  Sex: Male

DRUGS (4)
  1. SEGURIL [Suspect]
     Indication: CARDIAC FAILURE
     Route: 048
     Dates: start: 2011
  2. ALDACTONE [Interacting]
     Indication: CARDIAC FAILURE
     Route: 048
     Dates: start: 2011, end: 20120713
  3. ENALAPRIL [Interacting]
     Indication: CARDIAC FAILURE
     Route: 048
     Dates: start: 2011, end: 20120713
  4. ADIRO [Concomitant]
     Indication: PROPHYLAXIS
     Route: 048
     Dates: start: 2011, end: 20120713

REACTIONS (3)
  - Hyperkalaemia [Recovered/Resolved]
  - Drug interaction [Unknown]
  - Renal failure acute [Recovered/Resolved]
